FAERS Safety Report 19932619 (Version 1)
Quarter: 2021Q4

REPORT INFORMATION
  Report Type: Spontaneous
  Country: US (occurrence: US)
  Receive Date: 20211007
  Receipt Date: 20211007
  Transmission Date: 20220303
  Serious: Yes (Disabling)
  Sender: FDA-Public Use
  Company Number: None

PATIENT
  Age: 50 Year
  Sex: Female
  Weight: 50.4 kg

DRUGS (7)
  1. BOTOX [Suspect]
     Active Substance: ONABOTULINUMTOXINA
     Indication: Pain
     Dates: start: 20200106, end: 20210715
  2. ESTROGENS [Concomitant]
     Active Substance: ESTROGENS
  3. PROGESTERONE [Concomitant]
     Active Substance: PROGESTERONE
  4. VITAMIN D NOS [Concomitant]
     Active Substance: VITAMIN D NOS
  5. LEVOMEFOLATE CALCIUM [Concomitant]
     Active Substance: LEVOMEFOLATE CALCIUM
  6. ZOFRAN [Concomitant]
     Active Substance: ONDANSETRON HYDROCHLORIDE
  7. CARAFET [Concomitant]

REACTIONS (38)
  - Asthenia [None]
  - Muscle rupture [None]
  - Periarthritis [None]
  - Nerve compression [None]
  - Ligament disorder [None]
  - Muscle atrophy [None]
  - Ileus paralytic [None]
  - Dementia [None]
  - Amnesia [None]
  - Dry eye [None]
  - Dry mouth [None]
  - Dry skin [None]
  - Tremor [None]
  - Visual impairment [None]
  - Migraine [None]
  - Vomiting [None]
  - Loss of libido [None]
  - Hypoaesthesia [None]
  - Hypoaesthesia [None]
  - Hypoaesthesia [None]
  - Hypoaesthesia [None]
  - Photosensitivity reaction [None]
  - Temperature intolerance [None]
  - Sleep disorder [None]
  - Eyelid ptosis [None]
  - Facial paralysis [None]
  - Alopecia [None]
  - Neuralgia [None]
  - Anxiety [None]
  - Musculoskeletal disorder [None]
  - Jaw disorder [None]
  - Bruxism [None]
  - Temporomandibular joint syndrome [None]
  - Pruritus [None]
  - Decreased appetite [None]
  - Weight decreased [None]
  - Depression [None]
  - Impaired self-care [None]

NARRATIVE: CASE EVENT DATE: 20210705
